FAERS Safety Report 12752508 (Version 3)
Quarter: 2018Q3

REPORT INFORMATION
  Report Type: Spontaneous
  Country: US (occurrence: US)
  Receive Date: 20160915
  Receipt Date: 20180925
  Transmission Date: 20181010
  Serious: Yes (Hospitalization)
  Sender: FDA-Public Use
  Company Number: US-ASTELLAS-2015US036593

PATIENT
  Age: 77 Year
  Sex: Male

DRUGS (1)
  1. XTANDI [Suspect]
     Active Substance: ENZALUTAMIDE
     Indication: HORMONE-REFRACTORY PROSTATE CANCER
     Route: 048
     Dates: start: 20150909

REACTIONS (11)
  - Fall [Unknown]
  - Fatigue [Unknown]
  - Nausea [Unknown]
  - Cough [Unknown]
  - Rib fracture [Unknown]
  - Influenza like illness [Unknown]
  - Traumatic lung injury [Unknown]
  - Nausea [Unknown]
  - Chest discomfort [Unknown]
  - Arthralgia [Unknown]
  - Vomiting [Unknown]

NARRATIVE: CASE EVENT DATE: 20150909
